FAERS Safety Report 10468822 (Version 1)
Quarter: 2014Q3

REPORT INFORMATION
  Report Type: Spontaneous
  Country: GB (occurrence: GB)
  Receive Date: 20140923
  Receipt Date: 20140923
  Transmission Date: 20150326
  Serious: Yes (Hospitalization)
  Sender: FDA-Public Use
  Company Number: PHHY2014GB119309

PATIENT
  Age: 44 Year
  Sex: Male
  Weight: 43 kg

DRUGS (2)
  1. FLUCLOXACILLIN [Suspect]
     Active Substance: FLUCLOXACILLIN
     Indication: FOLLICULITIS
     Dosage: 500 MG, QD
     Route: 048
     Dates: start: 20140210, end: 20140217
  2. PENICILLIN V POTASSIUM. [Suspect]
     Active Substance: PENICILLIN V POTASSIUM
     Indication: ACUTE TONSILLITIS
     Dosage: 500 MG, QID
     Route: 048
     Dates: start: 20140203, end: 20140213

REACTIONS (1)
  - Jaundice [Recovered/Resolved]

NARRATIVE: CASE EVENT DATE: 20140309
